FAERS Safety Report 9120361 (Version 1)
Quarter: 2013Q1

REPORT INFORMATION
  Report Type: Spontaneous
  Country: US (occurrence: US)
  Receive Date: 20130226
  Receipt Date: 20130226
  Transmission Date: 20140127
  Serious: Yes (Life-Threatening, Hospitalization, Disabling, Other)
  Sender: FDA-Public Use
  Company Number: US-WATSON-2012-19982

PATIENT
  Age: 47 Year
  Sex: Male

DRUGS (1)
  1. MORPHINE SULFATE (UNKNOWN) [Suspect]
     Indication: BACK PAIN
     Dosage: 32 MG, DAILY
     Route: 037

REACTIONS (3)
  - Monoplegia [Recovered/Resolved with Sequelae]
  - Injection site granuloma [Recovered/Resolved]
  - Infusion site abscess [Recovered/Resolved]
